FAERS Safety Report 4328645-8 (Version None)
Quarter: 2004Q1

REPORT INFORMATION
  Report Type: 
  Country: None (occurrence: None)
  Receive Date: 20040325
  Receipt Date: 20040318
  Transmission Date: 20041129
  Serious: Yes (Hospitalization)
  Sender: FDA-Public Use
  Company Number: SAGL-ZLB/04/06/FRA

PATIENT
  Age: 35 Year
  Sex: Male

DRUGS (1)
  1. SANDOGLOBULIN [Suspect]
     Dosage: 12 G, I.V.
     Route: 042
     Dates: start: 20040227, end: 20030227

REACTIONS (1)
  - DYSPNOEA [None]
